FAERS Safety Report 17334768 (Version 1)
Quarter: 2020Q1

REPORT INFORMATION
  Report Type: Spontaneous
  Country: ES (occurrence: ES)
  Receive Date: 20200128
  Receipt Date: 20200128
  Transmission Date: 20200409
  Serious: Yes (Death, Hospitalization, Other)
  Sender: FDA-Public Use
  Company Number: ES-AUROBINDO-AUR-APL-2020-004503

PATIENT
  Age: 76 Year
  Sex: Female

DRUGS (3)
  1. LINEZOLID SOLUTION FOR INFUSION [Suspect]
     Active Substance: LINEZOLID
     Indication: PRODUCT USED FOR UNKNOWN INDICATION
     Dosage: UNK
     Route: 065
     Dates: start: 201908
  2. LINEZOLID TEVA [Suspect]
     Active Substance: LINEZOLID
     Indication: ABSCESS LIMB
     Dosage: 1200 MILLIGRAM, ONCE A DAY
     Route: 048
     Dates: start: 201903, end: 20190812
  3. SINEMET [Concomitant]
     Active Substance: CARBIDOPA\LEVODOPA
     Indication: PARKINSON^S DISEASE
     Dosage: UNK
     Route: 016

REACTIONS (6)
  - Tremor [Unknown]
  - Urinary tract infection [Unknown]
  - Internal haemorrhage [Fatal]
  - Hyperhidrosis [Unknown]
  - Asthenia [Unknown]
  - Abdominal discomfort [Unknown]

NARRATIVE: CASE EVENT DATE: 201904
